FAERS Safety Report 22123222 (Version 1)
Quarter: 2023Q1

REPORT INFORMATION
  Report Type: Spontaneous
  Country: US (occurrence: US)
  Receive Date: 20230322
  Receipt Date: 20230322
  Transmission Date: 20230418
  Serious: No
  Sender: FDA-Public Use
  Company Number: US-ASCENDIS PHARMA-2022US001029

PATIENT

DRUGS (2)
  1. SKYTROFA [Suspect]
     Active Substance: LONAPEGSOMATROPIN-TCGD
     Indication: Hypopituitarism
     Dosage: 15.2 MILLIGRAM (7.6MG X2)
     Route: 058
     Dates: start: 20220617
  2. SKYTROFA [Suspect]
     Active Substance: LONAPEGSOMATROPIN-TCGD
     Dosage: 7.6 MILLIGRAM (7.6MG X1)
     Route: 058

REACTIONS (10)
  - Dizziness [Recovered/Resolved]
  - Muscle spasms [Recovered/Resolved]
  - Bone pain [Recovered/Resolved]
  - Fatigue [Recovered/Resolved]
  - Abdominal discomfort [Recovered/Resolved]
  - Hot flush [Recovered/Resolved]
  - Lethargy [Recovered/Resolved]
  - Somnolence [Recovered/Resolved]
  - Myalgia [Recovered/Resolved]
  - Syncope [Recovered/Resolved]
